FAERS Safety Report 24019300 (Version 2)
Quarter: 2024Q3

REPORT INFORMATION
  Report Type: Spontaneous
  Country: CA (occurrence: CA)
  Receive Date: 20240627
  Receipt Date: 20240919
  Transmission Date: 20241016
  Serious: Yes (Death, Other)
  Sender: PFIZER
  Company Number: CA-PFIZER INC-202300454008

PATIENT
  Age: 64 Year
  Sex: Female
  Weight: 85 kg

DRUGS (8)
  1. RUXIENCE [Suspect]
     Active Substance: RITUXIMAB-PVVR
     Indication: Granulomatosis with polyangiitis
     Dosage: 750 MG, WEEKLY, FOR 4 WEEKS
     Route: 042
     Dates: start: 20231204
  2. RUXIENCE [Suspect]
     Active Substance: RITUXIMAB-PVVR
     Indication: Rheumatoid arthritis
     Dosage: 750 MG, WEEKLY, FOR 4 WEEKS
     Route: 042
     Dates: start: 20231211
  3. RUXIENCE [Suspect]
     Active Substance: RITUXIMAB-PVVR
     Dosage: 750 MG, WEEKLY, FOR 4 WEEKS
     Route: 042
     Dates: start: 20231220
  4. RUXIENCE [Suspect]
     Active Substance: RITUXIMAB-PVVR
     Dosage: 750 MG, WEEKLY, FOR 4 WEEKS
     Route: 042
     Dates: start: 20231220
  5. RUXIENCE [Suspect]
     Active Substance: RITUXIMAB-PVVR
     Dosage: 750 MG, EVERY WEEK  FOR 4  WEEKS (GIVEN AT 1WEEK)
     Route: 042
     Dates: start: 20231227
  6. RUXIENCE [Suspect]
     Active Substance: RITUXIMAB-PVVR
     Dosage: 750 MG, EVERY WEEK  FOR 4  WEEKS (GIVEN AT 1WEEK)
     Route: 042
     Dates: start: 20231227
  7. BENADRYL [Concomitant]
     Active Substance: DIPHENHYDRAMINE HYDROCHLORIDE
     Dosage: UNK
  8. PREDNISONE [Concomitant]
     Active Substance: PREDNISONE
     Dosage: UNK

REACTIONS (5)
  - Death [Fatal]
  - Pain [Recovered/Resolved]
  - Off label use [Unknown]
  - Intentional product use issue [Unknown]
  - Off label use [Unknown]

NARRATIVE: CASE EVENT DATE: 20230101
